FAERS Safety Report 9349959 (Version 2)
Quarter: 2013Q3

REPORT INFORMATION
  Report Type: Spontaneous
  Country: JP (occurrence: JP)
  Receive Date: 20130614
  Receipt Date: 20130701
  Transmission Date: 20140515
  Serious: Yes (Other)
  Sender: FDA-Public Use
  Company Number: PHHY2013JP060370

PATIENT
  Age: 87 Year
  Sex: Female

DRUGS (2)
  1. CARBAMAZEPINE [Suspect]
     Dosage: UNK UKN, UNK
     Route: 048
  2. VALPROIC ACID [Suspect]
     Dosage: UNK UKN, UNK
     Route: 048

REACTIONS (1)
  - Drug eruption [Unknown]
